FAERS Safety Report 9333175 (Version 3)
Quarter: 2013Q3

REPORT INFORMATION
  Report Type: Spontaneous
  Country: US (occurrence: None)
  Receive Date: 20130604
  Receipt Date: 20130802
  Transmission Date: 20140515
  Serious: Yes (Hospitalization)
  Sender: FDA-Public Use
  Company Number: 2013SGN00318

PATIENT
  Age: 66 Year
  Sex: Male

DRUGS (7)
  1. BRENTUXIMAB VEDOLIN [Suspect]
     Indication: HODGKIN^S DISEASE
     Dates: start: 20130322
  2. IFOSFAMIDE [Suspect]
     Indication: HODGKIN^S DISEASE
     Dates: end: 20130513
  3. MESNA [Suspect]
     Indication: HODGKIN^S DISEASE
  4. CARBOPLATIN [Suspect]
     Indication: HODGKIN^S DISEASE
     Dates: end: 20130513
  5. ETOPOSIDE [Suspect]
     Indication: HODGKIN^S DISEASE
     Dates: end: 20130513
  6. MIRALAX [Concomitant]
  7. STOOL SOFTENER (DOCUSATE SODIUM) [Concomitant]

REACTIONS (5)
  - Febrile neutropenia [None]
  - Nasal congestion [None]
  - Diarrhoea [None]
  - Constipation [None]
  - Blood potassium decreased [None]
